FAERS Safety Report 13607571 (Version 2)
Quarter: 2017Q2

REPORT INFORMATION
  Report Type: Spontaneous
  Country: US (occurrence: US)
  Receive Date: 20170602
  Receipt Date: 20170616
  Transmission Date: 20170830
  Serious: No
  Sender: FDA-Public Use
  Company Number: US-PFIZER INC-2017242177

PATIENT
  Age: 16 Year
  Sex: Male

DRUGS (1)
  1. ADVIL [Suspect]
     Active Substance: IBUPROFEN
     Dosage: UNK

REACTIONS (4)
  - Intentional product use issue [Unknown]
  - Hypoaesthesia [Unknown]
  - Nasal discomfort [Unknown]
  - Sneezing [Unknown]
